FAERS Safety Report 6775222-5 (Version None)
Quarter: 2010Q2

REPORT INFORMATION
  Report Type: 
  Country: None (occurrence: None)
  Receive Date: 20100615
  Receipt Date: 20100615
  Transmission Date: 20101027
  Serious: Yes (Life-Threatening, Hospitalization)
  Sender: FDA-Public Use
  Company Number: None

PATIENT
  Age: 45 Year
  Sex: Female
  Weight: 105.9 kg

DRUGS (1)
  1. PRALATREXATE ALLOS [Suspect]
     Indication: PERIPHERAL T-CELL LYMPHOMA UNSPECIFIED
     Dosage: 31 MG ONCE IV BOLUS
     Route: 040
     Dates: start: 20100603, end: 20100614

REACTIONS (8)
  - CHILLS [None]
  - DERMATITIS BULLOUS [None]
  - ERYTHEMA [None]
  - MOUTH ULCERATION [None]
  - MUCOSAL INFLAMMATION [None]
  - PANCYTOPENIA [None]
  - PYREXIA [None]
  - SKIN EXFOLIATION [None]
